FAERS Safety Report 4830052-6 (Version None)
Quarter: 2005Q4

REPORT INFORMATION
  Report Type: 
  Country: None (occurrence: None)
  Receive Date: 20051115
  Receipt Date: 20051115
  Transmission Date: 20060501
  Serious: Yes (Life-Threatening)
  Sender: FDA-Public Use
  Company Number: None

PATIENT
  Age: 67 Year
  Sex: Male
  Weight: 113.3993 kg

DRUGS (2)
  1. ZITHROMAX [Suspect]
     Indication: CHRONIC OBSTRUCTIVE PULMONARY DISEASE
     Dosage: 250 MG DAILY PO
     Route: 048
     Dates: start: 20050920, end: 20050923
  2. ZITHROMAX [Suspect]
     Indication: CONDITION AGGRAVATED
     Dosage: 250 MG DAILY PO
     Route: 048
     Dates: start: 20050920, end: 20050923

REACTIONS (3)
  - ANOREXIA [None]
  - DYSPNOEA [None]
  - NAUSEA [None]
